FAERS Safety Report 14868795 (Version 2)
Quarter: 2018Q2

REPORT INFORMATION
  Report Type: Spontaneous
  Country: US (occurrence: US)
  Receive Date: 20180509
  Receipt Date: 20180510
  Transmission Date: 20180711
  Serious: No
  Sender: FDA-Public Use
  Company Number: US-PFIZER INC-2018190055

PATIENT
  Age: 50 Year
  Sex: Female
  Weight: 83.91 kg

DRUGS (1)
  1. PREMARIN [Suspect]
     Active Substance: ESTROGENS, CONJUGATED
     Indication: MENOPAUSE
     Dosage: 0.625 MG, 1X/DAY (BEFORE GOING TO BED)
     Route: 048
     Dates: start: 20180502

REACTIONS (2)
  - Thyroid disorder [Unknown]
  - Headache [Not Recovered/Not Resolved]

NARRATIVE: CASE EVENT DATE: 20180504
